FAERS Safety Report 9616870 (Version 2)
Quarter: 2013Q4

REPORT INFORMATION
  Report Type: Report from Study
  Country: US (occurrence: US)
  Receive Date: 20131011
  Receipt Date: 20131011
  Transmission Date: 20140711
  Serious: Yes (Hospitalization)
  Sender: FDA-Public Use
  Company Number: PHEH2013US019168

PATIENT
  Age: 69 Year
  Sex: Female
  Weight: 65 kg

DRUGS (3)
  1. AFINITOR [Suspect]
     Indication: BREAST CANCER METASTATIC
     Dosage: 5 MG, QD
     Route: 048
  2. AMLODIPINE [Concomitant]
  3. CALCIUM [Concomitant]
     Dosage: UNK
     Route: 048
     Dates: start: 20130901

REACTIONS (4)
  - Peritonitis [Unknown]
  - Appendicitis perforated [Unknown]
  - Abdominal pain [Unknown]
  - Pyrexia [Unknown]
